FAERS Safety Report 9059909 (Version 1)
Quarter: 2013Q1

REPORT INFORMATION
  Report Type: Spontaneous
  Country: US (occurrence: US)
  Receive Date: 20130212
  Receipt Date: 20130212
  Transmission Date: 20140127
  Serious: Yes (Other)
  Sender: FDA-Public Use
  Company Number: US-JNJFOC-20130200263

PATIENT
  Sex: Male

DRUGS (5)
  1. DOXORUBICIN [Suspect]
     Indication: BONE SARCOMA
     Dosage: 7 MONTHS (EVENT OCCURED 27 MONTHS AFTER COMPLETION OF THERAPY)
     Route: 042
  2. METHOTREXATE [Suspect]
     Indication: BONE SARCOMA
     Dosage: FOR 7 MONTHS
     Route: 065
  3. LEUCOVORIN [Suspect]
     Indication: BONE SARCOMA
     Dosage: FOR 7 MONTHS
     Route: 065
  4. DACTINOMYCIN [Suspect]
     Indication: BONE SARCOMA
     Dosage: FOR 7 MONTHS
     Route: 065
  5. CYCLOPHOSPHAMIDE [Suspect]
     Indication: BONE SARCOMA
     Dosage: FOR 7 MONTHS
     Route: 065

REACTIONS (2)
  - Mucoepidermoid carcinoma [Recovered/Resolved]
  - Off label use [Unknown]
